FAERS Safety Report 22109781 (Version 4)
Quarter: 2023Q1

REPORT INFORMATION
  Report Type: Report from Study
  Country: FR (occurrence: FR)
  Receive Date: 20230317
  Receipt Date: 20230330
  Transmission Date: 20230417
  Serious: Yes (Hospitalization)
  Sender: FDA-Public Use
  Company Number: FR-SA-SAC20230307000718

PATIENT
  Age: 58 Year
  Sex: Male
  Weight: 70 kg

DRUGS (6)
  1. ISATUXIMAB [Suspect]
     Active Substance: ISATUXIMAB
     Indication: Plasma cell myeloma
     Dosage: 700 MG
     Route: 065
     Dates: start: 20230303, end: 20230303
  2. ISATUXIMAB [Suspect]
     Active Substance: ISATUXIMAB
     Dosage: UNK
     Dates: start: 20230309, end: 20230309
  3. CARFILZOMIB [Suspect]
     Active Substance: CARFILZOMIB
     Indication: Plasma cell myeloma
     Dosage: 36 MG
     Dates: start: 20230303, end: 20230303
  4. CARFILZOMIB [Suspect]
     Active Substance: CARFILZOMIB
     Dosage: UNK
     Dates: start: 20230309, end: 20230309
  5. LENALIDOMIDE [Suspect]
     Active Substance: LENALIDOMIDE
     Indication: Plasma cell myeloma
     Dosage: 25 MG
     Dates: start: 20230303, end: 20230303
  6. DEXAMETHASONE [Suspect]
     Active Substance: DEXAMETHASONE
     Indication: Plasma cell myeloma
     Dosage: 40 MG
     Dates: start: 20230303, end: 20230303

REACTIONS (4)
  - Infusion related reaction [Recovered/Resolved]
  - Pneumonia bacterial [Recovered/Resolved]
  - Acute kidney injury [Recovered/Resolved]
  - COVID-19 [Recovered/Resolved]

NARRATIVE: CASE EVENT DATE: 20230303
